FAERS Safety Report 7610342 (Version 16)
Quarter: 2014Q3

REPORT INFORMATION
  Report Type: Spontaneous
  Country: US (occurrence: US)
  Receive Date: 20100928
  Receipt Date: 20140812
  Transmission Date: 20150326
  Serious: Yes (Hospitalization, Other)
  Sender: FDA-Public Use
  Company Number: US-ASTRAZENECA-2010SE43765

PATIENT
  Age: 60 Year
  Sex: Female
  Weight: 99.8 kg

DRUGS (45)
  1. NEXIUM [Suspect]
     Active Substance: ESOMEPRAZOLE MAGNESIUM
     Route: 048
     Dates: end: 20100507
  2. GLIMEPIRIDE. [Concomitant]
     Active Substance: GLIMEPIRIDE
  3. MAGNESIUM OXIDE. [Concomitant]
     Active Substance: MAGNESIUM OXIDE
     Route: 048
  4. KLONOPIN [Concomitant]
     Active Substance: CLONAZEPAM
     Dosage: AS NEEDED
  5. HEPARIN [Concomitant]
     Active Substance: HEPARIN SODIUM
     Dosage: 5000 UNITS/1 ML 3 TIMES A DAY
     Dates: start: 20100513
  6. CALCIUM CARBONATE. [Concomitant]
     Active Substance: CALCIUM CARBONATE
     Route: 048
     Dates: start: 20100513
  7. FAMOTIDINE. [Concomitant]
     Active Substance: FAMOTIDINE
     Route: 048
     Dates: start: 20100512
  8. SIMVASTATIN. [Concomitant]
     Active Substance: SIMVASTATIN
     Route: 048
     Dates: start: 20060823
  9. SIMVASTATIN. [Concomitant]
     Active Substance: SIMVASTATIN
     Route: 048
  10. BENICAR [Concomitant]
     Active Substance: OLMESARTAN MEDOXOMIL
     Route: 048
  11. KLONOPIN [Concomitant]
     Active Substance: CLONAZEPAM
  12. TRAZODONE [Concomitant]
     Active Substance: TRAZODONE HYDROCHLORIDE
  13. COMBIVENT [Concomitant]
     Active Substance: ALBUTEROL SULFATE\IPRATROPIUM BROMIDE
     Route: 048
  14. MAGNESIUM SULFATE [Concomitant]
     Active Substance: MAGNESIUM SULFATE
     Dosage: 3-4 GRAMS/100CC
     Route: 042
     Dates: start: 20100512
  15. PRILOSEC [Suspect]
     Active Substance: OMEPRAZOLE MAGNESIUM
     Route: 048
     Dates: start: 1987
  16. PRILOSEC [Suspect]
     Active Substance: OMEPRAZOLE MAGNESIUM
     Dosage: DAILY
     Route: 048
     Dates: start: 1989
  17. TRAMADOL [Concomitant]
     Active Substance: TRAMADOL
     Indication: BACK PAIN
     Dosage: AS REQUIRED
  18. TRAZODONE [Concomitant]
     Active Substance: TRAZODONE HYDROCHLORIDE
     Dosage: 1-3  AS REQUIRED
  19. SITAGLIPTIN/JANUVIA [Concomitant]
     Indication: TYPE 2 DIABETES MELLITUS
     Route: 048
  20. MAGNESIUM GLUCONATE [Concomitant]
     Active Substance: MAGNESIUM GLUCONATE
     Dosage: 1000 MG EVERY TWO HOURS
     Route: 048
     Dates: start: 20100513
  21. TOPROL XL [Concomitant]
     Active Substance: METOPROLOL SUCCINATE
     Dates: start: 20060912
  22. PRILOSEC [Suspect]
     Active Substance: OMEPRAZOLE MAGNESIUM
     Route: 048
  23. ULTRACET [Concomitant]
     Active Substance: ACETAMINOPHEN\TRAMADOL HYDROCHLORIDE
     Dosage: 37.5-325 MG, ONCE A DAY
  24. OLMESARTAN [Concomitant]
     Active Substance: OLMESARTAN
     Route: 048
     Dates: start: 20100512
  25. INSULIN REGULAR HUMAN [Concomitant]
     Dosage: 1-6 UNIT TID
     Route: 058
     Dates: start: 20100513
  26. ERGOCALCIFEROL. [Concomitant]
     Active Substance: ERGOCALCIFEROL
     Dosage: 50000 UNIT ONCE
     Route: 048
     Dates: start: 20100514
  27. NORVASC [Concomitant]
     Active Substance: AMLODIPINE BESYLATE
  28. ZYRTEC [Concomitant]
     Active Substance: CETIRIZINE HYDROCHLORIDE
     Route: 048
  29. LANTUS [Concomitant]
     Active Substance: INSULIN GLARGINE
     Dosage: 100 UNITS/ML
  30. VERAMYST [Concomitant]
     Active Substance: FLUTICASONE FUROATE
     Route: 045
  31. ACETAMINOPHEN. [Concomitant]
     Active Substance: ACETAMINOPHEN
     Route: 048
  32. LORATADINE. [Concomitant]
     Active Substance: LORATADINE
     Route: 048
  33. JANUVIA [Concomitant]
     Active Substance: SITAGLIPTIN PHOSPHATE
     Route: 065
  34. NEXIUM [Suspect]
     Active Substance: ESOMEPRAZOLE MAGNESIUM
     Route: 048
     Dates: start: 20020109
  35. SODIUM CHLORIDE. [Concomitant]
     Active Substance: SODIUM CHLORIDE
     Route: 042
  36. CETYLPYRIDINIUM/BEZOCAIN/MENTHOL [Concomitant]
  37. SITAGLIPTIN/JANUVIA [Concomitant]
     Indication: TYPE 2 DIABETES MELLITUS
     Route: 048
     Dates: start: 20100513
  38. NEXIUM [Suspect]
     Active Substance: ESOMEPRAZOLE MAGNESIUM
     Route: 048
     Dates: start: 20060912
  39. GLIMEPIRIDE. [Concomitant]
     Active Substance: GLIMEPIRIDE
  40. FAMOTIDINE. [Concomitant]
     Active Substance: FAMOTIDINE
     Route: 048
  41. LOPERAMIDE [Concomitant]
     Active Substance: LOPERAMIDE
     Route: 048
  42. ALTEPLASE [Concomitant]
     Active Substance: ALTEPLASE
     Dates: start: 20100513
  43. NORVASC [Concomitant]
     Active Substance: AMLODIPINE BESYLATE
  44. SOMA [Concomitant]
     Active Substance: CARISOPRODOL
     Dosage: AS REQUIRED
  45. DETROL LA [Concomitant]
     Active Substance: TOLTERODINE TARTRATE
     Dates: start: 20060913

REACTIONS (115)
  - Fatigue [Unknown]
  - Cystitis [Unknown]
  - Hypersomnia [Unknown]
  - Weight increased [Unknown]
  - Arthropod bite [Unknown]
  - Attention deficit/hyperactivity disorder [Unknown]
  - Nausea [Unknown]
  - Blood cholesterol increased [Unknown]
  - Parkinson^s disease [Unknown]
  - Diarrhoea [Unknown]
  - Cerebrovascular accident [Unknown]
  - Learning disorder [Unknown]
  - Deafness [Unknown]
  - Electrolyte imbalance [Unknown]
  - Chest discomfort [Recovered/Resolved]
  - Personality disorder [Unknown]
  - Muscle atrophy [Unknown]
  - Cough [Unknown]
  - Sinusitis [Unknown]
  - Throat irritation [Unknown]
  - Hallucination [Unknown]
  - Chronic fatigue syndrome [Unknown]
  - Arteriosclerosis [Unknown]
  - Cardiovascular disorder [Unknown]
  - Somnolence [Unknown]
  - Migraine [Unknown]
  - Hypomagnesaemia [Recovering/Resolving]
  - Change of bowel habit [Unknown]
  - Tinnitus [Unknown]
  - Ear pain [Unknown]
  - Muscle spasms [Unknown]
  - Blood pressure abnormal [Unknown]
  - Haemorrhoids [Unknown]
  - Pollakiuria [Unknown]
  - Chronic obstructive pulmonary disease [Unknown]
  - Oropharyngeal pain [Unknown]
  - Anxiety [Unknown]
  - Vertigo [Unknown]
  - Influenza like illness [Unknown]
  - Restlessness [Unknown]
  - Panic attack [Unknown]
  - Drug hypersensitivity [Unknown]
  - Depression [Unknown]
  - Arrhythmia [Unknown]
  - Foot fracture [Unknown]
  - Nasal congestion [Unknown]
  - Memory impairment [Unknown]
  - Tremor [Unknown]
  - Dyspnoea [Unknown]
  - Gastritis [Unknown]
  - Diverticulum intestinal [Unknown]
  - Tachycardia [Unknown]
  - Disturbance in attention [Unknown]
  - Hypoaesthesia [Unknown]
  - Muscular weakness [Unknown]
  - Pyrexia [Unknown]
  - Vomiting [Unknown]
  - Fatigue [Unknown]
  - Dementia Alzheimer^s type [Unknown]
  - Emotional disorder [Unknown]
  - Asthma [Unknown]
  - Precancerous skin lesion [Unknown]
  - Fibromyalgia [Unknown]
  - Polyuria [Unknown]
  - Genital abscess [Recovering/Resolving]
  - Apathy [Unknown]
  - Apnoea [Unknown]
  - Irritability [Unknown]
  - Mitral valve prolapse [Unknown]
  - Personality change [Unknown]
  - Stress urinary incontinence [Unknown]
  - Cellulitis [Recovering/Resolving]
  - Tympanic membrane perforation [Unknown]
  - Steatorrhoea [Unknown]
  - Urinary tract infection [Unknown]
  - Nicotine dependence [Unknown]
  - Tooth loss [Unknown]
  - Agitation [Unknown]
  - Insomnia [Unknown]
  - Muscle contractions involuntary [Unknown]
  - Leukocytosis [Recovered/Resolved]
  - Blindness [Unknown]
  - Eye disorder [Unknown]
  - Delirium [Unknown]
  - Pneumonia [Unknown]
  - Back pain [Unknown]
  - Otitis externa [Unknown]
  - Colitis [Unknown]
  - Cardiomegaly [Unknown]
  - Palpitations [Unknown]
  - Gastrointestinal disorder [Unknown]
  - Barrett^s oesophagus [Unknown]
  - Hearing impaired [Unknown]
  - Mental status changes [Unknown]
  - Hiatus hernia [Unknown]
  - Pulmonary hypertension [Unknown]
  - Generalised anxiety disorder [Unknown]
  - Ear pruritus [Unknown]
  - Ankle fracture [Unknown]
  - Paraesthesia [Unknown]
  - Amnesia [Unknown]
  - Hypertensive heart disease [Unknown]
  - Plasma protein metabolism disorder [Unknown]
  - Food allergy [Unknown]
  - Blood triglycerides increased [Unknown]
  - Heart rate increased [Unknown]
  - Conjunctivitis [Unknown]
  - Somatisation disorder [Unknown]
  - Uterine leiomyoma [Unknown]
  - Sleep apnoea syndrome [Unknown]
  - Type 2 diabetes mellitus [Unknown]
  - Confusional state [Unknown]
  - Rheumatoid arthritis [Unknown]
  - Thinking abnormal [Unknown]
  - Muscle twitching [Unknown]

NARRATIVE: CASE EVENT DATE: 2007
